FAERS Safety Report 13600786 (Version 1)
Quarter: 2017Q2

REPORT INFORMATION
  Report Type: Spontaneous
  Country: US (occurrence: US)
  Receive Date: 20170601
  Receipt Date: 20170601
  Transmission Date: 20170830
  Serious: Yes (Other)
  Sender: FDA-Public Use
  Company Number: US-CONCORDIA PHARMACEUTICALS INC.-GSH201705-003251

PATIENT
  Sex: Female
  Weight: 100.33 kg

DRUGS (1)
  1. PLAQUENIL [Suspect]
     Active Substance: HYDROXYCHLOROQUINE SULFATE
     Indication: RESPIRATORY DISORDER

REACTIONS (2)
  - Pharyngeal oedema [Unknown]
  - Hypersensitivity [Unknown]
